APPROVED DRUG PRODUCT: ACLOVATE
Active Ingredient: ALCLOMETASONE DIPROPIONATE
Strength: 0.05% **Federal Register determination that product was not discontinued or withdrawn for safety or effectiveness reasons**
Dosage Form/Route: OINTMENT;TOPICAL
Application: N018702 | Product #001
Applicant: FOUGERA PHARMACEUTICALS INC
Approved: Dec 14, 1982 | RLD: Yes | RS: No | Type: DISCN